FAERS Safety Report 25634280 (Version 2)
Quarter: 2025Q4

REPORT INFORMATION
  Report Type: Report from Study
  Country: US (occurrence: US)
  Receive Date: 20250801
  Receipt Date: 20251124
  Transmission Date: 20260117
  Serious: Yes (Hospitalization, Other)
  Sender: ABBVIE
  Company Number: US-ABBVIE-6312253

PATIENT
  Age: 83 Year
  Sex: Female

DRUGS (3)
  1. SKYRIZI [Suspect]
     Active Substance: RISANKIZUMAB-RZAA
     Indication: Product used for unknown indication
     Dosage: MAINTENANCE DOSE
     Route: 058
     Dates: start: 20250723
  2. SKYRIZI [Suspect]
     Active Substance: RISANKIZUMAB-RZAA
     Dosage: LAST ADMIN DATE 2025
     Route: 058
     Dates: start: 20250328
  3. SKYRIZI [Suspect]
     Active Substance: RISANKIZUMAB-RZAA
     Dosage: LAST ADMIN DATE 2025
     Route: 058
     Dates: start: 20250403

REACTIONS (10)
  - Dehydration [Unknown]
  - Loss of consciousness [Recovering/Resolving]
  - Condition aggravated [Unknown]
  - Anal incontinence [Recovered/Resolved]
  - Fatigue [Not Recovered/Not Resolved]
  - Fall [Unknown]
  - Head injury [Unknown]
  - Amnesia [Unknown]
  - Anal incontinence [Unknown]
  - Stress [Unknown]

NARRATIVE: CASE EVENT DATE: 20250101
